FAERS Safety Report 5741131-3 (Version None)
Quarter: 2008Q2

REPORT INFORMATION
  Report Type: 
  Country: None (occurrence: None)
  Receive Date: 20080516
  Receipt Date: 20080507
  Transmission Date: 20081010
  Serious: Yes (Other)
  Sender: FDA-Public Use
  Company Number: GB-PFIZER INC-2008040308

PATIENT
  Age: 51 Year
  Sex: Male

DRUGS (1)
  1. CHANTIX [Suspect]
     Route: 048

REACTIONS (5)
  - AGITATION [None]
  - AMNESIA [None]
  - ANXIETY [None]
  - DISINHIBITION [None]
  - LOSS OF CONSCIOUSNESS [None]
